FAERS Safety Report 11253145 (Version 1)
Quarter: 2015Q3

REPORT INFORMATION
  Report Type: Spontaneous
  Country: US (occurrence: None)
  Receive Date: 20150708
  Receipt Date: 20150708
  Transmission Date: 20151125
  Serious: No
  Sender: FDA-Public Use
  Company Number: None

PATIENT
  Age: 28 Year
  Sex: Female

DRUGS (1)
  1. HUMIRA [Suspect]
     Active Substance: ADALIMUMAB
     Indication: PRODUCT USED FOR UNKNOWN INDICATION
     Dosage: 40MG?QOW?SQ?THERAPY?FROM 1 YEAR AGO TO CURRENT

REACTIONS (5)
  - Hypoaesthesia [None]
  - Night sweats [None]
  - Headache [None]
  - Hot flush [None]
  - Paraesthesia [None]
